FAERS Safety Report 5080043-8 (Version None)
Quarter: 2006Q3

REPORT INFORMATION
  Report Type: 
  Country: None (occurrence: None)
  Receive Date: 20060810
  Receipt Date: 20060731
  Transmission Date: 20061208
  Serious: Yes (Other)
  Sender: FDA-Public Use
  Company Number: 2006094832

PATIENT
  Age: 62 Year
  Sex: Male

DRUGS (17)
  1. PROCARDIA XL [Suspect]
     Indication: DRUG USE FOR UNKNOWN INDICATION
  2. MOTRIN [Suspect]
     Indication: DRUG USE FOR UNKNOWN INDICATION
  3. LIPITOR [Concomitant]
  4. TOPROL-XL [Concomitant]
  5. PLAVIX [Concomitant]
  6. ASPIRIN [Concomitant]
  7. PROPOXYPHENE HCL AND ACETAMINOPHEN (DEXTROPROPOXYPHENE HYDROCHLORIDE, [Concomitant]
  8. CLARINEX [Concomitant]
  9. ISOSORBIDE MONONITRATE (ISOLORBIDE MONONITRATE) [Concomitant]
  10. FUROSEMIDE [Concomitant]
  11. LANTUS [Concomitant]
  12. TERAZOSIN (TERAZOSIN) [Concomitant]
  13. ZETIA [Concomitant]
  14. INSULIN [Concomitant]
  15. FOLATE (FOLIC ACID) [Concomitant]
  16. VITAMIN B6 (VITAMIN B6) [Concomitant]
  17. VITAMIN B12 [Concomitant]

REACTIONS (3)
  - HYPERSENSITIVITY [None]
  - PHARYNGEAL OEDEMA [None]
  - SWOLLEN TONGUE [None]
